FAERS Safety Report 24879140 (Version 3)
Quarter: 2025Q1

REPORT INFORMATION
  Report Type: Spontaneous
  Country: US (occurrence: US)
  Receive Date: 20250123
  Receipt Date: 20250221
  Transmission Date: 20250409
  Serious: Yes (Hospitalization)
  Sender: CATALYST PHARMA
  Company Number: US-CATALYST PHARMACEUTICALS-US-CATA-25-00082

PATIENT
  Age: 6 Year
  Sex: Male
  Weight: 31.995 kg

DRUGS (7)
  1. AGAMREE [Suspect]
     Active Substance: VAMOROLONE
     Indication: Duchenne muscular dystrophy
     Dosage: 3 ML DAILY
     Route: 048
     Dates: start: 20241018
  2. PREDNISOLONE [Concomitant]
     Active Substance: PREDNISOLONE
     Indication: Duchenne muscular dystrophy
     Dosage: DAILY
     Route: 048
     Dates: start: 202210, end: 202210
  3. FLONASE [Concomitant]
     Active Substance: FLUTICASONE PROPIONATE
     Indication: Hypersensitivity
     Dosage: 1 SPRAY TWICE A DAY
     Route: 045
  4. CETIRIZINE [Concomitant]
     Active Substance: CETIRIZINE HYDROCHLORIDE
     Indication: Hypersensitivity
     Dosage: 10 MG DAILY
     Route: 065
  5. GUANFACINE [Concomitant]
     Active Substance: GUANFACINE
     Indication: Sleep disorder
     Dosage: 1 MG EVERY NIGHT AT BEDTIME
     Route: 065
     Dates: end: 20250102
  6. SILVER SULFADIAZINE [Concomitant]
     Active Substance: SILVER SULFADIAZINE
     Indication: Thermal burn
     Route: 065
  7. MELATONIN GUMMIES [Concomitant]
     Indication: Sleep disorder
     Dosage: AT BEDTIME
     Route: 065

REACTIONS (3)
  - Seizure [Recovered/Resolved]
  - Respiratory rate decreased [Not Recovered/Not Resolved]
  - Heart rate increased [Recovered/Resolved]

NARRATIVE: CASE EVENT DATE: 20250101
